FAERS Safety Report 8687571 (Version 2)
Quarter: 2013Q4

REPORT INFORMATION
  Report Type: Spontaneous
  Country: NO (occurrence: NO)
  Receive Date: 20120727
  Receipt Date: 20131108
  Transmission Date: 20140711
  Serious: Yes (Hospitalization)
  Sender: FDA-Public Use
  Company Number: NO-009507513-1207NOR010904

PATIENT
  Age: 65 Year
  Sex: Female

DRUGS (6)
  1. TRAMADOL HYDROCHLORIDE [Concomitant]
     Indication: PAIN
     Dosage: 50 MG UP TO 3 TIMES A DAY
     Route: 048
  2. SOBRIL [Concomitant]
     Indication: ANXIETY
     Dosage: 15 MG UP TO 3 TIMES A DAY
     Route: 048
  3. LEVAXIN [Concomitant]
     Indication: METABOLIC DISORDER
     Dosage: 125 MICROG/DAY ONCE DAILY, 5 OF 7 DAYS A WEEK.
     Route: 048
  4. TRILAFON [Suspect]
     Indication: DEPRESSION
     Route: 048
     Dates: start: 20120626, end: 20120701
  5. WELLBUTRIN [Suspect]
     Indication: DEPRESSION
     Route: 048
     Dates: start: 20120626, end: 20120701
  6. CIPRAMIL [Concomitant]
     Indication: DEPRESSION
     Route: 048

REACTIONS (1)
  - Supraventricular tachycardia [Recovered/Resolved]
